FAERS Safety Report 8139194-3 (Version None)
Quarter: 2012Q1

REPORT INFORMATION
  Report Type: 
  Country: None (occurrence: None)
  Receive Date: 20120215
  Receipt Date: 20120206
  Transmission Date: 20120608
  Serious: Yes (Hospitalization)
  Sender: FDA-Public Use
  Company Number: NL-JNJFOC-20120102386

PATIENT
  Sex: Female
  Weight: 113.6 kg

DRUGS (3)
  1. ACITRETIN [Suspect]
     Indication: PRODUCT USED FOR UNKNOWN INDICATION
  2. TOPICAL CORTICOSTEROIDS [Suspect]
     Indication: PRODUCT USED FOR UNKNOWN INDICATION
     Route: 061
  3. USTEKINUMAB [Suspect]
     Indication: PSORIASIS
     Route: 058
     Dates: start: 20101001

REACTIONS (1)
  - ACUTE MYOCARDIAL INFARCTION [None]
